FAERS Safety Report 8997061 (Version 2)
Quarter: 2013Q1

REPORT INFORMATION
  Report Type: Spontaneous
  Country: US (occurrence: US)
  Receive Date: 20130104
  Receipt Date: 20130220
  Transmission Date: 20140127
  Serious: Yes (Other)
  Sender: FDA-Public Use
  Company Number: US-JNJFOC-20121213712

PATIENT
  Age: 52 Year
  Sex: Female
  Weight: 72.58 kg

DRUGS (4)
  1. STELARA [Suspect]
     Indication: PSORIASIS
     Route: 058
     Dates: start: 20121121
  2. ANESTHESIA [Suspect]
     Indication: PAIN
     Route: 065
     Dates: start: 20121210, end: 20121210
  3. PAIN MEDICATION [Suspect]
     Indication: PAIN
     Route: 065
     Dates: start: 20121210, end: 20121214
  4. PENICILLIN [Suspect]
     Indication: PROPHYLAXIS
     Route: 048
     Dates: start: 20121210, end: 20121217

REACTIONS (5)
  - Endodontic procedure [Unknown]
  - Pruritus [Recovered/Resolved]
  - Urticaria [Not Recovered/Not Resolved]
  - Drug ineffective [Not Recovered/Not Resolved]
  - Discomfort [None]
